FAERS Safety Report 18379812 (Version 1)
Quarter: 2020Q4

REPORT INFORMATION
  Report Type: Spontaneous
  Country: BR (occurrence: BR)
  Receive Date: 20201013
  Receipt Date: 20201013
  Transmission Date: 20210114
  Serious: Yes (Hospitalization, Other)
  Sender: FDA-Public Use
  Company Number: BR-TAKEDA-2020TUS042543

PATIENT
  Age: 34 Year
  Sex: Female

DRUGS (5)
  1. ATAZANAVIR. [Concomitant]
     Active Substance: ATAZANAVIR
     Dosage: UNK
  2. LAMIVUDINE. [Concomitant]
     Active Substance: LAMIVUDINE
     Dosage: UNK
  3. VEDOLIZUMAB [Suspect]
     Active Substance: VEDOLIZUMAB
     Indication: PRODUCT USED FOR UNKNOWN INDICATION
     Dosage: UNK
     Route: 065
     Dates: start: 2018
  4. RITONAVIR. [Concomitant]
     Active Substance: RITONAVIR
     Dosage: UNK
  5. TENOFOVIR [Concomitant]
     Active Substance: TENOFOVIR
     Dosage: UNK

REACTIONS (1)
  - COVID-19 [Recovered/Resolved]

NARRATIVE: CASE EVENT DATE: 202007
